FAERS Safety Report 12328746 (Version 1)
Quarter: 2016Q2

REPORT INFORMATION
  Report Type: Spontaneous
  Country: US (occurrence: US)
  Receive Date: 20160503
  Receipt Date: 20160503
  Transmission Date: 20160815
  Serious: No
  Sender: FDA-Public Use
  Company Number: US-BEH-2015050510

PATIENT
  Sex: Female
  Weight: 70.3 kg

DRUGS (19)
  1. EPIPEN [Concomitant]
     Active Substance: EPINEPHRINE
     Indication: ANAPHYLACTIC REACTION
  2. RAMIPRIL. [Concomitant]
     Active Substance: RAMIPRIL
     Route: 048
  3. SYNTHROID [Concomitant]
     Active Substance: LEVOTHYROXINE SODIUM
     Route: 048
  4. BUPROPION XL [Concomitant]
     Active Substance: BUPROPION
     Route: 048
  5. VITAMIN K [Concomitant]
     Active Substance: PHYTONADIONE
     Route: 048
  6. HIZENTRA [Suspect]
     Active Substance: HUMAN IMMUNOGLOBULIN G
     Route: 058
  7. DIPHENHYDRAMINE. [Concomitant]
     Active Substance: DIPHENHYDRAMINE
     Indication: ANAPHYLACTIC REACTION
  8. LUTEIN [Concomitant]
     Active Substance: LUTEIN
     Dosage: AS DIRECTED
     Route: 048
  9. VITAMIN D [Concomitant]
     Active Substance: CHOLECALCIFEROL
     Dosage: AS DIRECTED
     Route: 048
  10. LYCOPENE [Concomitant]
     Active Substance: LYCOPENE
     Dosage: AS DIRECTED
     Route: 048
  11. VITAMIN B12 AND FOLIC ACID [Concomitant]
     Dosage: AS DIRECTED
     Route: 048
  12. OMEGA-3 ACIDS [Concomitant]
     Active Substance: OMEGA-3 FATTY ACIDS
     Dosage: AS DIRECTED, 300-1000 MG
  13. HIZENTRA [Suspect]
     Active Substance: HUMAN IMMUNOGLOBULIN G
     Indication: IMMUNODEFICIENCY COMMON VARIABLE
     Route: 058
  14. PANTOPRAZOLE [Concomitant]
     Active Substance: PANTOPRAZOLE SODIUM
     Route: 048
  15. HYALURONIC ACID [Concomitant]
     Active Substance: HYALURONIC ACID
     Dosage: AS DIRECTED
     Route: 048
  16. METFORMIN [Concomitant]
     Active Substance: METFORMIN HYDROCHLORIDE
     Route: 048
  17. SERTRALINE [Concomitant]
     Active Substance: SERTRALINE HYDROCHLORIDE
     Route: 048
  18. COQ10 [Concomitant]
     Active Substance: UBIDECARENONE
     Dosage: AS DIRECTED
     Route: 048
  19. OMEGA 7 [Concomitant]
     Dosage: AS DIRECTED
     Route: 048

REACTIONS (1)
  - Infusion site pain [Recovered/Resolved]
